FAERS Safety Report 11805858 (Version 2)
Quarter: 2016Q1

REPORT INFORMATION
  Report Type: Report from Study
  Country: GB (occurrence: GB)
  Receive Date: 20151207
  Receipt Date: 20160317
  Transmission Date: 20160525
  Serious: Yes (Death, Hospitalization)
  Sender: FDA-Public Use
  Company Number: GB-AMGEN-GBRNI2015129395

PATIENT
  Age: 83 Year
  Sex: Male

DRUGS (1)
  1. ETANERCEPT [Suspect]
     Active Substance: ETANERCEPT
     Indication: RHEUMATOID ARTHRITIS
     Dosage: 25 MG, UNK
     Route: 065
     Dates: start: 20041102

REACTIONS (2)
  - Haemorrhagic stroke [Fatal]
  - Pneumonia [Unknown]

NARRATIVE: CASE EVENT DATE: 20150127
